FAERS Safety Report 15570987 (Version 3)
Quarter: 2018Q4

REPORT INFORMATION
  Report Type: Spontaneous
  Country: DE (occurrence: DE)
  Receive Date: 20181031
  Receipt Date: 20181212
  Transmission Date: 20190205
  Serious: Yes (Other)
  Sender: FDA-Public Use
  Company Number: DE-SA-2018SA294969

PATIENT
  Sex: Male

DRUGS (2)
  1. IODINE (131 I) [Concomitant]
     Active Substance: SODIUM IODIDE I-131
     Dosage: RADIOIODINE CAPSULE
     Route: 065
  2. THYROGEN [Suspect]
     Active Substance: THYROTROPIN ALFA
     Route: 030

REACTIONS (10)
  - Erythema migrans [Unknown]
  - Skin irritation [Unknown]
  - Neutrophil percentage abnormal [Unknown]
  - White blood cell count abnormal [Unknown]
  - Skin discolouration [Unknown]
  - Swelling [Unknown]
  - Erythema [Unknown]
  - Borrelia infection [Recovering/Resolving]
  - Dyspnoea [Unknown]
  - Arthritis [Unknown]
